FAERS Safety Report 15111177 (Version 1)
Quarter: 2018Q3

REPORT INFORMATION
  Report Type: Spontaneous
  Country: JP (occurrence: JP)
  Receive Date: 20180705
  Receipt Date: 20180705
  Transmission Date: 20181010
  Serious: Yes (Hospitalization, Congenital Anomaly, Other)
  Sender: FDA-Public Use
  Company Number: JP-MYLANLABS-2018M1048738

PATIENT
  Sex: Female

DRUGS (2)
  1. KETOPROFEN. [Suspect]
     Active Substance: KETOPROFEN
     Dosage: ADMINISTRATION OF UP TO 12 PATCHES
     Route: 064
  2. KETOPROFEN. [Suspect]
     Active Substance: KETOPROFEN
     Indication: NECK PAIN
     Dosage: USED UP TO 8 PATCHES OF KETOPROFEN 20MG SIMULTAEOUSLY IN A REPETITIVE MANNER
     Route: 064

REACTIONS (12)
  - Foetal exposure during pregnancy [Unknown]
  - Pulmonary artery dilatation [Unknown]
  - Ductus arteriosus stenosis foetal [Recovered/Resolved]
  - Cardiomegaly [Recovered/Resolved]
  - Hypertrophic cardiomyopathy [Unknown]
  - Cardiac failure [Unknown]
  - Pulmonary hypertension [Unknown]
  - Contraindicated product administered [Unknown]
  - Atrial septal defect [Unknown]
  - Pericardial effusion [Unknown]
  - Tricuspid valve incompetence [Recovered/Resolved]
  - Right ventricular hypertrophy [Recovered/Resolved]
